FAERS Safety Report 18111528 (Version 2)
Quarter: 2020Q3

REPORT INFORMATION
  Report Type: Spontaneous
  Country: IT (occurrence: IT)
  Receive Date: 20200804
  Receipt Date: 20200919
  Transmission Date: 20201103
  Serious: Yes (Hospitalization, Other)
  Sender: FDA-Public Use
  Company Number: NVSC2020IT215175

PATIENT
  Age: 65 Year
  Sex: Male

DRUGS (1)
  1. COSENTYX [Suspect]
     Active Substance: SECUKINUMAB
     Indication: PRODUCT USED FOR UNKNOWN INDICATION
     Dosage: 300 MG, QW (INDUCTIVE PART )
     Route: 065

REACTIONS (3)
  - Prostate cancer [Recovered/Resolved with Sequelae]
  - Prostatic specific antigen increased [Recovered/Resolved with Sequelae]
  - Erectile dysfunction [Unknown]

NARRATIVE: CASE EVENT DATE: 20200318
